FAERS Safety Report 5161997-8 (Version None)
Quarter: 2006Q4

REPORT INFORMATION
  Report Type: 
  Country: None (occurrence: None)
  Receive Date: 20061121
  Receipt Date: 20061109
  Transmission Date: 20070319
  Serious: Yes (Death)
  Sender: FDA-Public Use
  Company Number: 2006078522

PATIENT
  Age: 78 Year
  Sex: Male

DRUGS (7)
  1. CELEBREX [Suspect]
     Dosage: 200 MG (200 MG, 1 IN 1 D), ORAL
     Route: 048
     Dates: start: 20041201, end: 20060601
  2. IDEBENONE (IDEBENONE) [Concomitant]
  3. TRIMETAZIDINE (TRIMETAZIDINE) [Concomitant]
  4. PREDNISOLONE [Concomitant]
  5. FUROSEMIDE [Concomitant]
  6. ASPIRIN [Concomitant]
  7. SERENOA REPENS (SERENOA REPENS) [Concomitant]

REACTIONS (4)
  - OESOPHAGEAL CARCINOMA [None]
  - PARAESTHESIA [None]
  - PHARMACEUTICAL PRODUCT COMPLAINT [None]
  - URTICARIA [None]
